FAERS Safety Report 19913348 (Version 1)
Quarter: 2021Q4

REPORT INFORMATION
  Report Type: Spontaneous
  Country: CA (occurrence: CA)
  Receive Date: 20211004
  Receipt Date: 20211004
  Transmission Date: 20220303
  Serious: Yes (Other)
  Sender: FDA-Public Use
  Company Number: CA-TEVA-2021-CA-1959924

PATIENT
  Sex: Male

DRUGS (6)
  1. HALOPERIDOL [Suspect]
     Active Substance: HALOPERIDOL
     Indication: Agitation
     Route: 048
  2. CLONIDINE [Concomitant]
     Active Substance: CLONIDINE
  3. HYDROXYZINE [Concomitant]
     Active Substance: HYDROXYZINE HYDROCHLORIDE
  4. IBUPROFEN [Concomitant]
     Active Substance: IBUPROFEN
  5. SUBOXONE [Concomitant]
     Active Substance: BUPRENORPHINE HYDROCHLORIDE\NALOXONE HYDROCHLORIDE
     Route: 065
  6. TYLENOL [Concomitant]
     Active Substance: ACETAMINOPHEN

REACTIONS (14)
  - Anxiety [Unknown]
  - Blood pressure increased [Unknown]
  - Chills [Unknown]
  - Dyspnoea [Unknown]
  - Emotional distress [Unknown]
  - Heart rate increased [Unknown]
  - Hyperhidrosis [Unknown]
  - Moaning [Unknown]
  - Nausea [Unknown]
  - Pain [Unknown]
  - Restlessness [Unknown]
  - Salivary hypersecretion [Unknown]
  - Tremor [Unknown]
  - Trismus [Unknown]
